FAERS Safety Report 13671893 (Version 2)
Quarter: 2018Q2

REPORT INFORMATION
  Report Type: Report from Study
  Country: US (occurrence: US)
  Receive Date: 20170620
  Receipt Date: 20180522
  Transmission Date: 20180711
  Serious: No
  Sender: FDA-Public Use
  Company Number: PHEH2017US018729

PATIENT
  Age: 24 Year
  Sex: Male
  Weight: 145.13 kg

DRUGS (1)
  1. GILENYA [Suspect]
     Active Substance: FINGOLIMOD HYDROCHLORIDE
     Indication: MULTIPLE SCLEROSIS
     Dosage: 0.5 MG, QD
     Route: 048
     Dates: start: 20160303, end: 20170613

REACTIONS (3)
  - Fatigue [Unknown]
  - Muscular weakness [Unknown]
  - Somnolence [Unknown]

NARRATIVE: CASE EVENT DATE: 20170614
